FAERS Safety Report 10446140 (Version 2)
Quarter: 2015Q1

REPORT INFORMATION
  Report Type: Report from Study
  Country: IL (occurrence: IL)
  Receive Date: 20140910
  Receipt Date: 20150105
  Transmission Date: 20150720
  Serious: Yes (Hospitalization)
  Sender: FDA-Public Use
  Company Number: IL-009507513-1409ISR003770

PATIENT
  Age: 66 Year
  Sex: Male

DRUGS (8)
  1. RIBAVIRIN. [Suspect]
     Active Substance: RIBAVIRIN
     Indication: HEPATITIS C
     Dosage: 600MG DAILY, 2 IN 1 D
     Route: 048
     Dates: start: 20140313
  2. PEGINTERFERON ALFA-2A [Suspect]
     Active Substance: PEGINTERFERON ALFA-2A
     Indication: HEPATITIS C
     Dosage: 180 MICROGRAM DAILY, 1 IN 1 WK
     Route: 058
     Dates: start: 20140313
  3. ENALAPRIL MALEATE. [Concomitant]
     Active Substance: ENALAPRIL MALEATE
     Indication: HYPERTENSION
     Dosage: 10MG, 2 IN 1D
     Route: 048
  4. ACAMOL [Concomitant]
     Active Substance: ACETAMINOPHEN
     Dosage: 1000MG DAILY,4 IN 1 D
  5. CALCIUM CARBONATE. [Concomitant]
     Active Substance: CALCIUM CARBONATE
     Dosage: 600MG, 1 IN 1 D
  6. BOCEPREVIR [Suspect]
     Active Substance: BOCEPREVIR
     Indication: HEPATITIS C
     Dosage: 2400MG DAILY,TID
     Route: 048
     Dates: start: 20140410
  7. CHOLECALCIFEROL [Concomitant]
     Active Substance: CHOLECALCIFEROL
     Dosage: 400IU 2 IN 1 D
     Dates: start: 201401
  8. VITAMIN D [Concomitant]
     Active Substance: CHOLECALCIFEROL

REACTIONS (15)
  - Dysuria [None]
  - Haematocrit decreased [None]
  - Platelet count decreased [None]
  - Blood calcium decreased [None]
  - Lymphocyte count decreased [None]
  - Blood sodium decreased [None]
  - Basophil count decreased [None]
  - Blood iron decreased [None]
  - White blood cell count decreased [None]
  - Haemoglobin decreased [None]
  - Pyrexia [Recovered/Resolved]
  - Neutrophil count decreased [None]
  - Monocyte count decreased [None]
  - Red blood cell count decreased [None]
  - Mean cell haemoglobin concentration decreased [None]

NARRATIVE: CASE EVENT DATE: 20140901
